FAERS Safety Report 4263605-7 (Version None)
Quarter: 2004Q1

REPORT INFORMATION
  Report Type: 
  Country: None (occurrence: None)
  Receive Date: 20040102
  Receipt Date: 20031219
  Transmission Date: 20041129
  Serious: Yes (Hospitalization)
  Sender: FDA-Public Use
  Company Number: T02-USA-01088-01

PATIENT
  Age: 81 Year
  Sex: Male
  Weight: 84.8226 kg

DRUGS (12)
  1. MEMANTINE HCL [Suspect]
     Indication: DEMENTIA ALZHEIMER'S TYPE
     Dosage: 2 TABLET BID PO
     Route: 048
     Dates: start: 20020423
  2. PLACEBO (SINGLE-BLIND) (PLACEBO) [Suspect]
     Indication: DEMENTIA ALZHEIMER'S TYPE
     Dosage: 2 TABLET BID PO
     Route: 048
     Dates: start: 20020409, end: 20020401
  3. VIOXX [Concomitant]
  4. GINKGO(GINKGO BILOBA) [Concomitant]
  5. VITAMIN E [Concomitant]
  6. TOCOTRIENAL [Concomitant]
  7. VITAMIN C [Concomitant]
  8. ACETYL-CARNATINE [Concomitant]
  9. ALPHA-LYPOIC [Concomitant]
  10. CHOL-WELL [Concomitant]
  11. MULTI-VITAMINS [Concomitant]
  12. CALCIUM [Concomitant]

REACTIONS (2)
  - DEEP VEIN THROMBOSIS [None]
  - PULMONARY EMBOLISM [None]
